FAERS Safety Report 5128967-7 (Version None)
Quarter: 2006Q4

REPORT INFORMATION
  Report Type: 
  Country: None (occurrence: None)
  Receive Date: 20061016
  Receipt Date: 20061016
  Transmission Date: 20070319
  Serious: No
  Sender: FDA-Public Use
  Company Number: None

PATIENT
  Age: 31 Year
  Sex: Female
  Weight: 63.5036 kg

DRUGS (1)
  1. CIPROFLOXACIN 1000 MG [Suspect]
     Indication: DIARRHOEA INFECTIOUS
     Dosage: 1000 MG  DAILY  PO
     Route: 048
     Dates: start: 20060813, end: 20060817

REACTIONS (1)
  - TENDON RUPTURE [None]
